FAERS Safety Report 7554033-7 (Version None)
Quarter: 2011Q2

REPORT INFORMATION
  Report Type: 
  Country: None (occurrence: None)
  Receive Date: 20110614
  Receipt Date: 20110614
  Transmission Date: 20111010
  Serious: Yes (Other)
  Sender: FDA-Public Use
  Company Number: None

PATIENT
  Sex: Male

DRUGS (1)
  1. SYMBICORT [Suspect]
     Indication: DYSPNOEA
     Dosage: 2 PUFFS TWICE A DAY PO
     Route: 048
     Dates: start: 20110601, end: 20110612

REACTIONS (4)
  - CHEST PAIN [None]
  - URTICARIA [None]
  - SKIN BURNING SENSATION [None]
  - ABDOMINAL PAIN UPPER [None]
